FAERS Safety Report 4371064-9 (Version None)
Quarter: 2004Q2

REPORT INFORMATION
  Report Type: 
  Country: None (occurrence: None)
  Receive Date: 20040604
  Receipt Date: 20040524
  Transmission Date: 20050107
  Serious: Yes (Hospitalization)
  Sender: FDA-Public Use
  Company Number: PHRM2004FR01911

PATIENT
  Age: 62 Year
  Sex: Female
  Weight: 82 kg

DRUGS (6)
  1. CIBADREX [Suspect]
     Dosage: 1 TAB/DAY
     Route: 048
  2. EURELIX [Suspect]
     Dosage: 6 MG/DAY
     Route: 048
  3. LODOZ [Suspect]
     Route: 048
  4. TAHOR [Concomitant]
     Dosage: 40 MG/DAY
     Route: 048
  5. DAONIL [Concomitant]
     Dosage: 5 MG/DAY
     Route: 048
  6. KALEORID [Concomitant]
     Route: 048

REACTIONS (11)
  - DIZZINESS [None]
  - DRUG INTERACTION [None]
  - DYSKINESIA [None]
  - FALL [None]
  - LOSS OF CONSCIOUSNESS [None]
  - ORTHOSTATIC HYPOTENSION [None]
  - SINUS TACHYCARDIA [None]
  - SUPRAVENTRICULAR EXTRASYSTOLES [None]
  - URINARY INCONTINENCE [None]
  - VENTRICULAR EXTRASYSTOLES [None]
  - VOMITING [None]
